FAERS Safety Report 4429675-8 (Version None)
Quarter: 2004Q3

REPORT INFORMATION
  Report Type: 
  Country: None (occurrence: None)
  Receive Date: 20040819
  Receipt Date: 20040809
  Transmission Date: 20050211
  Serious: Yes (Death)
  Sender: FDA-Public Use
  Company Number: IL-MERCK-0408ISR00029

PATIENT
  Age: 46 Year
  Sex: Male

DRUGS (2)
  1. DIPYRONE [Concomitant]
     Indication: ARTHRALGIA
     Route: 065
     Dates: start: 20040801
  2. VIOXX [Suspect]
     Indication: ARTHRALGIA
     Route: 065
     Dates: start: 20040801

REACTIONS (1)
  - DEATH [None]
